FAERS Safety Report 7256616-0 (Version None)
Quarter: 2011Q1

REPORT INFORMATION
  Report Type: 
  Country: None (occurrence: None)
  Receive Date: 20110129
  Receipt Date: 20100805
  Transmission Date: 20110831
  Serious: No
  Sender: FDA-Public Use
  Company Number: US-ABBOTT-10P-163-0662984-00

PATIENT
  Age: 38 Year
  Sex: Female

DRUGS (4)
  1. TERBINAFINE HCL [Suspect]
     Indication: NAIL DISCOLOURATION
     Route: 048
  2. PEPCID [Concomitant]
     Indication: PRODUCT USED FOR UNKNOWN INDICATION
  3. NASAL SPRAY [Suspect]
     Indication: SINUSITIS
  4. HUMIRA [Suspect]
     Indication: CROHN'S DISEASE
     Dates: start: 20070201

REACTIONS (6)
  - ABDOMINAL DISCOMFORT [None]
  - VISION BLURRED [None]
  - NERVOUS SYSTEM DISORDER [None]
  - SINUSITIS [None]
  - DIZZINESS [None]
  - NAIL DISCOLOURATION [None]
